FAERS Safety Report 4297718-0 (Version None)
Quarter: 2004Q1

REPORT INFORMATION
  Report Type: 
  Country: None (occurrence: None)
  Receive Date: 20040217
  Receipt Date: 20040217
  Transmission Date: 20041129
  Serious: Yes (Other)
  Sender: FDA-Public Use
  Company Number: None

PATIENT
  Age: 6 Year
  Sex: Male
  Weight: 28.123 kg

DRUGS (1)
  1. RISPERDAL [Suspect]
     Indication: AFFECTIVE DISORDER
     Dosage: 1 MG QD ORAL
     Route: 048
     Dates: start: 20031210, end: 20031224

REACTIONS (2)
  - DYSPNOEA [None]
  - RESPIRATION ABNORMAL [None]
